FAERS Safety Report 23356623 (Version 1)
Quarter: 2024Q1

REPORT INFORMATION
  Report Type: Other
  Country: ES (occurrence: None)
  Receive Date: 20240102
  Receipt Date: 20240102
  Transmission Date: 20240410
  Serious: Yes (Other)
  Sender: FDA-Public Use
  Company Number: ES-ROCHE-3482461

PATIENT

DRUGS (1)
  1. ATEZOLIZUMAB [Suspect]
     Active Substance: ATEZOLIZUMAB
     Indication: Bladder transitional cell carcinoma metastatic
     Route: 065

REACTIONS (32)
  - Asthenia [Unknown]
  - Rash [Unknown]
  - Pruritus [Unknown]
  - Diarrhoea [Unknown]
  - Hypothyroidism [Unknown]
  - Constipation [Unknown]
  - Anaemia [Unknown]
  - Hyperthyroidism [Unknown]
  - Nausea [Unknown]
  - Nephropathy toxic [Unknown]
  - Hepatotoxicity [Unknown]
  - Arthralgia [Unknown]
  - Decreased appetite [Unknown]
  - Dyspnoea [Unknown]
  - Neutropenia [Unknown]
  - Neuropathy peripheral [Unknown]
  - Abdominal pain [Unknown]
  - Dysgeusia [Unknown]
  - Weight decreased [Unknown]
  - Myalgia [Unknown]
  - Vomiting [Unknown]
  - Stomatitis [Unknown]
  - Pneumonitis [Unknown]
  - Thrombocytopenia [Unknown]
  - Pyrexia [Unknown]
  - Ileus paralytic [Unknown]
  - Alopecia [Unknown]
  - Pancreatitis [Unknown]
  - Adrenal insufficiency [Unknown]
  - Seizure [Unknown]
  - Psoriasis [Unknown]
  - Tubulointerstitial nephritis [Unknown]
